FAERS Safety Report 8052542-8 (Version None)
Quarter: 2012Q1

REPORT INFORMATION
  Report Type: 
  Country: None (occurrence: None)
  Receive Date: 20120118
  Receipt Date: 20120109
  Transmission Date: 20120608
  Serious: Yes (Other)
  Sender: FDA-Public Use
  Company Number: US-ASTRAZENECA-2012SE01728

PATIENT
  Age: 72 Year
  Sex: Male

DRUGS (3)
  1. TOPROL-XL [Concomitant]
  2. CRESTOR [Suspect]
     Route: 048
  3. FLOMAX [Suspect]
     Route: 065

REACTIONS (2)
  - LOSS OF CONSCIOUSNESS [None]
  - MYALGIA [None]
